FAERS Safety Report 23602522 (Version 1)
Quarter: 2024Q1

REPORT INFORMATION
  Report Type: Spontaneous
  Country: US (occurrence: None)
  Receive Date: 20240306
  Receipt Date: 20240306
  Transmission Date: 20240410
  Serious: No
  Sender: FDA-Public Use
  Company Number: None

PATIENT
  Age: 79 Year
  Sex: Female
  Weight: 53.52 kg

DRUGS (14)
  1. ZOLEDRONIC ACID [Suspect]
     Active Substance: ZOLEDRONIC ACID
     Indication: Osteoporosis
     Route: 042
     Dates: start: 20240216
  2. AMLODIPINE [Concomitant]
     Active Substance: AMLODIPINE BESYLATE
  3. ATORVASTATIN [Concomitant]
     Active Substance: ATORVASTATIN
  4. RESTASIS [Concomitant]
     Active Substance: CYCLOSPORINE
  5. COSOPT [Concomitant]
     Active Substance: DORZOLAMIDE HYDROCHLORIDE\TIMOLOL MALEATE
  6. LATANOPROST [Concomitant]
     Active Substance: LATANOPROST
  7. MONTELUKAST [Concomitant]
     Active Substance: MONTELUKAST SODIUM
  8. OMEPRAZOLE [Concomitant]
     Active Substance: OMEPRAZOLE
  9. RAMELTEON [Concomitant]
     Active Substance: RAMELTEON
  10. TYLENOL EXTRA STRENGTH [Concomitant]
     Active Substance: ACETAMINOPHEN
  11. VITAMIN D [Concomitant]
     Active Substance: VITAMIN D NOS
  12. CALCIUM [Concomitant]
     Active Substance: CALCIUM
  13. AREDS Preservision [Concomitant]
  14. MULTI-VITAMINS [Concomitant]

REACTIONS (6)
  - Chest discomfort [None]
  - Bone pain [None]
  - Influenza like illness [None]
  - Vomiting [None]
  - Myalgia [None]
  - Decreased appetite [None]

NARRATIVE: CASE EVENT DATE: 20240216
